FAERS Safety Report 16683958 (Version 7)
Quarter: 2020Q2

REPORT INFORMATION
  Report Type: Spontaneous
  Country: GB (occurrence: AT)
  Receive Date: 20190808
  Receipt Date: 20200528
  Transmission Date: 20200713
  Serious: Yes (Hospitalization, Other)
  Sender: FDA-Public Use
  Company Number: AT-ELI_LILLY_AND_COMPANY-AT201908001998

PATIENT
  Age: 72 Year
  Sex: Female

DRUGS (30)
  1. DULOXETINE HYDROCHLORIDE. [Suspect]
     Active Substance: DULOXETINE HYDROCHLORIDE
     Dosage: UNK UNK, UNKNOWN
     Route: 048
  2. CLOMIPRAMIN [Suspect]
     Active Substance: CLOMIPRAMINE
     Dosage: UNK UNK, UNKNOWN
     Route: 065
  3. CLOMIPRAMIN [Suspect]
     Active Substance: CLOMIPRAMINE
     Dosage: 25 MG, UNKNOWN
     Route: 042
  4. DIAZEPAM. [Suspect]
     Active Substance: DIAZEPAM
     Indication: THROMBOSIS PROPHYLAXIS
     Dosage: 24 MG, QD
     Route: 048
  5. MAPROTILIN [Suspect]
     Active Substance: MAPROTILINE
     Indication: PRODUCT USED FOR UNKNOWN INDICATION
     Dosage: UNK UNK, UNKNOWN
     Route: 065
  6. LAMOTRIGIN [Suspect]
     Active Substance: LAMOTRIGINE
     Indication: SEDATION
     Dosage: UNK UNK, UNKNOWN
     Route: 065
  7. AMITRIPTYLINE [Suspect]
     Active Substance: AMITRIPTYLINE
     Indication: INSOMNIA
     Dosage: UNK UNK, UNKNOWN
     Route: 065
  8. CLOMIPRAMIN [Suspect]
     Active Substance: CLOMIPRAMINE
     Indication: PRODUCT USED FOR UNKNOWN INDICATION
     Dosage: 25 MG, DAILY
     Route: 042
  9. ZOLPIDEM [Suspect]
     Active Substance: ZOLPIDEM TARTRATE
     Indication: INSOMNIA
     Dosage: UNK UNK, UNKNOWN
     Route: 065
  10. ENOXAPARIN [Suspect]
     Active Substance: ENOXAPARIN
     Indication: THROMBOSIS PROPHYLAXIS
     Dosage: 40 MG, DAILY
     Route: 058
  11. PREGABALIN. [Suspect]
     Active Substance: PREGABALIN
     Indication: PRODUCT USED FOR UNKNOWN INDICATION
     Dosage: UNK UNK, UNKNOWN
     Route: 065
  12. CLOMIPRAMIN [Suspect]
     Active Substance: CLOMIPRAMINE
     Indication: PRODUCT USED FOR UNKNOWN INDICATION
     Dosage: 150 MG, DAILY
     Route: 048
  13. MOCLOBEMID [Suspect]
     Active Substance: MOCLOBEMIDE
     Indication: PRODUCT USED FOR UNKNOWN INDICATION
     Dosage: UNK UNK, UNKNOWN
     Route: 065
  14. MOCLOBEMID [Suspect]
     Active Substance: MOCLOBEMIDE
     Dosage: UNK UNK, UNKNOWN
     Route: 065
  15. LITHIUM. [Suspect]
     Active Substance: LITHIUM
     Dosage: UNK UNK, UNKNOWN
     Route: 065
  16. DULOXETINE HYDROCHLORIDE. [Suspect]
     Active Substance: DULOXETINE HYDROCHLORIDE
     Indication: PRODUCT USED FOR UNKNOWN INDICATION
     Dosage: 30 MG, UNKNOWN
     Route: 048
  17. CLOMIPRAMIN [Suspect]
     Active Substance: CLOMIPRAMINE
     Dosage: 75 MG, DAILY
     Route: 048
  18. ZOLPIDEM [Suspect]
     Active Substance: ZOLPIDEM TARTRATE
     Dosage: UNK UNK, UNKNOWN
     Route: 065
  19. MIRTAZAPINE. [Suspect]
     Active Substance: MIRTAZAPINE
     Indication: PRODUCT USED FOR UNKNOWN INDICATION
     Dosage: 30 MG, DAILY
     Route: 065
  20. DIAZEPAM. [Suspect]
     Active Substance: DIAZEPAM
     Indication: SEDATION
     Dosage: 24 MILLIGRAM IN 4 SINGLE DOSE AS DROPS WITH FIRST REDUCTION AFTER 5 DAYS
     Route: 048
  21. AMITRIPTYLINE [Suspect]
     Active Substance: AMITRIPTYLINE
     Dosage: UNK UNK, UNKNOWN
     Route: 065
  22. DULOXETINE HYDROCHLORIDE. [Suspect]
     Active Substance: DULOXETINE HYDROCHLORIDE
     Dosage: 60 MG, DAILY
     Route: 048
  23. CLOMIPRAMIN [Suspect]
     Active Substance: CLOMIPRAMINE
     Dosage: 12.5 MG, DAILY
     Route: 042
  24. CLOMIPRAMIN [Suspect]
     Active Substance: CLOMIPRAMINE
     Dosage: UNK UNK, UNKNOWN
     Route: 048
  25. TOPIRAMAT [Suspect]
     Active Substance: TOPIRAMATE
     Indication: THROMBOSIS PROPHYLAXIS
     Dosage: UNK UNK, UNKNOWN
     Route: 065
  26. MAPROTILIN [Suspect]
     Active Substance: MAPROTILINE
     Dosage: UNK
     Route: 065
  27. LITHIUM. [Suspect]
     Active Substance: LITHIUM
     Dosage: UNK UNK, UNKNOWN
     Route: 065
  28. QUETIAPIN [Suspect]
     Active Substance: QUETIAPINE
     Indication: PRODUCT USED FOR UNKNOWN INDICATION
     Dosage: UNK UNK, UNKNOWN
     Route: 065
  29. CLOMIPRAMIN [Suspect]
     Active Substance: CLOMIPRAMINE
     Dosage: 12.5 MG, UNKNOWN
     Route: 042
  30. LITHIUM. [Suspect]
     Active Substance: LITHIUM
     Indication: PRODUCT USED FOR UNKNOWN INDICATION
     Dosage: UNK UNK, UNKNOWN
     Route: 065

REACTIONS (21)
  - Chest discomfort [Unknown]
  - Disturbance in attention [Unknown]
  - Hypotension [Unknown]
  - Decreased appetite [Unknown]
  - Depression [Unknown]
  - Decreased activity [Unknown]
  - Suicidal ideation [Unknown]
  - Weight decreased [Unknown]
  - Palpitations [Unknown]
  - Sleep disorder [Unknown]
  - Decreased interest [Unknown]
  - Depressed mood [Unknown]
  - Restlessness [Recovered/Resolved]
  - Feeling abnormal [Unknown]
  - Nausea [Recovered/Resolved]
  - Abdominal discomfort [Unknown]
  - Drug ineffective [Unknown]
  - Fracture [Unknown]
  - Tachycardia [Unknown]
  - Dizziness [Unknown]
  - Tremor [Unknown]

NARRATIVE: CASE EVENT DATE: 2014
